FAERS Safety Report 7893297-7 (Version None)
Quarter: 2011Q4

REPORT INFORMATION
  Report Type: 
  Country: None (occurrence: None)
  Receive Date: 20111104
  Receipt Date: 20111031
  Transmission Date: 20120403
  Serious: Yes (Hospitalization, Other)
  Sender: FDA-Public Use
  Company Number: BR-PFIZER INC-2011266743

PATIENT
  Age: 45 Year
  Sex: Male
  Weight: 146 kg

DRUGS (1)
  1. ALDACTONE [Suspect]
     Indication: BLOOD POTASSIUM DECREASED
     Dosage: 50 MG, EVERY 12 HOURS
     Route: 048
     Dates: start: 20010101

REACTIONS (5)
  - GYNAECOMASTIA [None]
  - BREAST PAIN [None]
  - HEART RATE INCREASED [None]
  - MYOCARDIAL INFARCTION [None]
  - BLOOD POTASSIUM DECREASED [None]
